FAERS Safety Report 10480896 (Version 2)
Quarter: 2014Q4

REPORT INFORMATION
  Report Type: Spontaneous
  Country: DK (occurrence: DK)
  Receive Date: 20140929
  Receipt Date: 20141114
  Transmission Date: 20150528
  Serious: Yes (Other)
  Sender: FDA-Public Use
  Company Number: DK-BAYER-2014-136841

PATIENT
  Sex: Female

DRUGS (1)
  1. CANESTEN V OVULES [Suspect]
     Active Substance: CLOTRIMAZOLE
     Dosage: UNK

REACTIONS (6)
  - Blister [None]
  - Skin atrophy [None]
  - Burning sensation [None]
  - Dysuria [None]
  - Skin haemorrhage [None]
  - Pruritus [None]
